FAERS Safety Report 5947919-8 (Version None)
Quarter: 2008Q4

REPORT INFORMATION
  Report Type: 
  Country: None (occurrence: None)
  Receive Date: 20081111
  Receipt Date: 20080903
  Transmission Date: 20090506
  Serious: Yes (Other)
  Sender: FDA-Public Use
  Company Number: A0745690A

PATIENT
  Age: 54 Year
  Sex: Female

DRUGS (1)
  1. TREXIMET [Suspect]
     Indication: MIGRAINE
     Dosage: 1TAB UNKNOWN
     Route: 048
     Dates: start: 20080101, end: 20080101

REACTIONS (3)
  - CARDIAC ENZYMES INCREASED [None]
  - CHEST PAIN [None]
  - MYOCARDIAL INFARCTION [None]
